FAERS Safety Report 8168633-7 (Version None)
Quarter: 2012Q1

REPORT INFORMATION
  Report Type: 
  Country: None (occurrence: None)
  Receive Date: 20120227
  Receipt Date: 20120221
  Transmission Date: 20120608
  Serious: Yes (Other)
  Sender: FDA-Public Use
  Company Number: US-PFIZER INC-2012025861

PATIENT
  Sex: Male
  Weight: 67 kg

DRUGS (2)
  1. ZITHROMAX [Suspect]
     Indication: URETHRITIS
     Dosage: 1 G, UNK
     Route: 048
     Dates: start: 20111121, end: 20111121
  2. CEFTRIAXONE [Suspect]
     Indication: URETHRITIS
     Dosage: 1 G, UNK
     Route: 030

REACTIONS (3)
  - DRUG INEFFECTIVE [None]
  - CHLAMYDIA TEST POSITIVE [None]
  - DRUG RESISTANCE [None]
